FAERS Safety Report 6630871-X (Version None)
Quarter: 2010Q1

REPORT INFORMATION
  Report Type: 
  Country: None (occurrence: None)
  Receive Date: 20100311
  Receipt Date: 20100302
  Transmission Date: 20100710
  Serious: Yes (Other)
  Sender: FDA-Public Use
  Company Number: JP-ROCHE-615542

PATIENT
  Age: 43 Year
  Sex: Female

DRUGS (3)
  1. CELLCEPT [Suspect]
     Route: 048
  2. TACROLIMUS HYDRATE [Concomitant]
     Route: 048
  3. SIMULECT [Concomitant]
     Dosage: ROUTE: INTRAVENOUS (NOT OTHERWISE SPECIFIED)
     Route: 042

REACTIONS (2)
  - HISTIOCYTOSIS HAEMATOPHAGIC [None]
  - LIVER DISORDER [None]
